FAERS Safety Report 8453734-6 (Version None)
Quarter: 2012Q2

REPORT INFORMATION
  Report Type: 
  Country: None (occurrence: None)
  Receive Date: 20120620
  Receipt Date: 20120618
  Transmission Date: 20120825
  Serious: Yes (Death)
  Sender: FDA-Public Use
  Company Number: US-ACTELION-A-NJ2012-67365

PATIENT

DRUGS (2)
  1. ADCIRCA [Concomitant]
  2. VENTAVIS [Suspect]
     Indication: PULMONARY ARTERIAL HYPERTENSION
     Dosage: 5 ?G, 6 X DAILY
     Route: 055
     Dates: start: 20101213

REACTIONS (2)
  - DEATH [None]
  - TREATMENT NONCOMPLIANCE [None]
